FAERS Safety Report 4318804-2 (Version None)
Quarter: 2004Q1

REPORT INFORMATION
  Report Type: 
  Country: None (occurrence: None)
  Receive Date: 20040318
  Receipt Date: 20040305
  Transmission Date: 20041129
  Serious: Yes (Other)
  Sender: FDA-Public Use
  Company Number: JP-GLAXOSMITHKLINE-B0326260A

PATIENT
  Age: 29 Year
  Sex: Female

DRUGS (3)
  1. VALTREX [Suspect]
     Indication: HERPES SIMPLEX
     Dosage: 500MG PER DAY
     Route: 048
     Dates: start: 20040303, end: 20040303
  2. CRAVIT [Suspect]
     Dosage: 100MG THREE TIMES PER DAY
     Route: 065
  3. ALLEGRA [Suspect]
     Dosage: 60MG TWICE PER DAY
     Route: 048

REACTIONS (3)
  - ANAPHYLACTOID REACTION [None]
  - DYSPNOEA [None]
  - THROAT IRRITATION [None]
